FAERS Safety Report 4770809-3 (Version None)
Quarter: 2005Q3

REPORT INFORMATION
  Report Type: 
  Country: None (occurrence: None)
  Receive Date: 20050914
  Receipt Date: 20050902
  Transmission Date: 20060218
  Serious: Yes (Hospitalization, Other)
  Sender: FDA-Public Use
  Company Number: 2005119159

PATIENT
  Age: 3 Year
  Sex: Female
  Weight: 15.5 kg

DRUGS (9)
  1. AZITHROMYCIN [Suspect]
     Indication: LYMPHADENITIS SUPPURATIVE
     Dosage: INTRAVENOUS
     Route: 042
     Dates: start: 20031101, end: 20031101
  2. AZITHROMYCIN [Suspect]
     Indication: PNEUMONIA
     Dosage: INTRAVENOUS
     Route: 042
     Dates: start: 20031101, end: 20031101
  3. METHYLPREDNISOLONE SODIUM SUCCINATE [Suspect]
     Indication: KAWASAKI'S DISEASE
     Dosage: INTRAVENOUS
     Route: 042
     Dates: start: 20031211, end: 20031211
  4. CEFTRIAXONE [Suspect]
     Indication: LYMPHADENITIS SUPPURATIVE
     Dosage: INTRAVENOUS
     Route: 042
     Dates: start: 20031101, end: 20031101
  5. CEFTRIAXONE [Suspect]
     Indication: PNEUMONIA
     Dosage: INTRAVENOUS
     Route: 042
     Dates: start: 20031101, end: 20031101
  6. ASPIRIN [Concomitant]
  7. PANIPENEM (PANIPENEM) [Concomitant]
  8. BETAMIPRON (BETAMIPRON) [Concomitant]
  9. IMMUNOGLOBULINS (IMMUNOGLOBULINS) [Concomitant]

REACTIONS (16)
  - BACTERIAL INFECTION [None]
  - BLISTER [None]
  - BRAIN STEM AUDITORY EVOKED RESPONSE ABNORMAL [None]
  - DEAFNESS NEUROSENSORY [None]
  - EYE DISCHARGE [None]
  - HYPOPROTEINAEMIA [None]
  - INFLAMMATION [None]
  - KAWASAKI'S DISEASE [None]
  - LIVER FUNCTION TEST ABNORMAL [None]
  - MOUTH ULCERATION [None]
  - PERICARDIAL EFFUSION [None]
  - PRURITUS [None]
  - RASH PAPULAR [None]
  - SWELLING FACE [None]
  - THERAPY NON-RESPONDER [None]
  - UNRESPONSIVE TO VERBAL STIMULI [None]
